FAERS Safety Report 4582446-4 (Version None)
Quarter: 2005Q1

REPORT INFORMATION
  Report Type: 
  Country: None (occurrence: None)
  Receive Date: 20050125
  Receipt Date: 20041004
  Transmission Date: 20050727
  Serious: No
  Sender: FDA-Public Use
  Company Number: REM_00069_2004

PATIENT
  Age: 74 Year
  Sex: Female
  Weight: 90 kg

DRUGS (10)
  1. REMODULIN [Suspect]
     Indication: EMBOLISM
     Dosage: 5 NG/KG/MIN CONTINOUS SC
     Route: 058
     Dates: start: 20040726
  2. REMODULIN [Suspect]
     Indication: PULMONARY HYPERTENSION
     Dosage: 5 NG/KG/MIN CONTINOUS SC
     Route: 058
     Dates: start: 20040726
  3. COUMADIN [Concomitant]
  4. LASIX [Concomitant]
  5. LOSEC [Concomitant]
  6. ELTROXIN [Concomitant]
  7. LIPIDIL [Concomitant]
  8. SPIRIVA [Concomitant]
  9. SEREVENT [Concomitant]
  10. FLONASE [Concomitant]

REACTIONS (3)
  - INFUSION SITE PAIN [None]
  - INJECTION SITE HAEMORRHAGE [None]
  - INTERNATIONAL NORMALISED RATIO INCREASED [None]
